FAERS Safety Report 10003554 (Version 8)
Quarter: 2015Q2

REPORT INFORMATION
  Report Type: Spontaneous
  Country: GB (occurrence: GB)
  Receive Date: 20140312
  Receipt Date: 20150501
  Transmission Date: 20150821
  Serious: Yes (Other)
  Sender: FDA-Public Use
  Company Number: PHFR2014GB002024

PATIENT
  Age: 38 Year
  Sex: Male

DRUGS (3)
  1. INTERFERON BETA-1A [Concomitant]
     Active Substance: INTERFERON BETA-1A
     Route: 065
  2. GILENYA [Suspect]
     Active Substance: FINGOLIMOD HYDROCHLORIDE
     Indication: RELAPSING-REMITTING MULTIPLE SCLEROSIS
     Dosage: 0.5 MG, QD
     Route: 048
     Dates: start: 20121030, end: 20140303
  3. BACLOFEN. [Concomitant]
     Active Substance: BACLOFEN
     Route: 065

REACTIONS (10)
  - Lymphocyte count decreased [Recovering/Resolving]
  - T-lymphocyte count decreased [Recovering/Resolving]
  - Skin lesion [Recovering/Resolving]
  - Neutrophil count decreased [Recovering/Resolving]
  - Kaposi^s sarcoma [Recovering/Resolving]
  - Mean platelet volume decreased [Recovering/Resolving]
  - B-lymphocyte count decreased [Recovering/Resolving]
  - Gamma-glutamyltransferase increased [Recovering/Resolving]
  - White blood cell count decreased [Recovering/Resolving]
  - Monocyte count decreased [Recovering/Resolving]

NARRATIVE: CASE EVENT DATE: 201401
